FAERS Safety Report 13648219 (Version 3)
Quarter: 2017Q3

REPORT INFORMATION
  Report Type: Report from Study
  Country: US (occurrence: US)
  Receive Date: 20170613
  Receipt Date: 20170824
  Transmission Date: 20171127
  Serious: Yes (Other)
  Sender: FDA-Public Use
  Company Number: US-AMGEN-USASL2017087343

PATIENT
  Age: 72 Year
  Sex: Female
  Weight: 82.54 kg

DRUGS (9)
  1. YOSPRALA [Concomitant]
     Active Substance: ASPIRIN\OMEPRAZOLE
     Dosage: 81-40 MG, QD
     Route: 048
  2. REPATHA [Suspect]
     Active Substance: EVOLOCUMAB
     Indication: HYPERLIPIDAEMIA
     Dosage: 140 MG/ML, Q2WK
     Route: 065
     Dates: start: 201601
  3. PLAVIX [Suspect]
     Active Substance: CLOPIDOGREL BISULFATE
     Indication: PRODUCT USED FOR UNKNOWN INDICATION
     Dosage: UNK
     Route: 065
  4. LORAZEPAM. [Concomitant]
     Active Substance: LORAZEPAM
     Dosage: 1 MG, 15 DAYS
  5. VITAMIN C [Concomitant]
     Active Substance: ASCORBIC ACID
     Dosage: UNK UNK, QD
     Route: 048
  6. CYMBALTA [Concomitant]
     Active Substance: DULOXETINE HYDROCHLORIDE
     Dosage: 60 MG, QD
  7. VITAMIN B12 [Concomitant]
     Active Substance: CYANOCOBALAMIN
     Dosage: 100 MUG, QD
     Route: 048
  8. EXFORGE [Concomitant]
     Active Substance: AMLODIPINE BESYLATE\VALSARTAN
     Dosage: 10-160 MG, QD
  9. FERROUSUL [Concomitant]
     Dosage: 325 MG, QD
     Route: 048

REACTIONS (18)
  - Cardiac murmur [Unknown]
  - Hemianopia [Unknown]
  - Neck pain [Unknown]
  - Pedal pulse decreased [Unknown]
  - Anaemia [Unknown]
  - Internal haemorrhage [Unknown]
  - Type IIa hyperlipidaemia [Unknown]
  - Rash [Unknown]
  - Dry mouth [Unknown]
  - Musculoskeletal stiffness [Unknown]
  - Peripheral vascular disorder [Unknown]
  - Electrocardiogram abnormal [Unknown]
  - Joint stiffness [Unknown]
  - Carotid pulse abnormal [Unknown]
  - Popliteal pulse decreased [Unknown]
  - Stent placement [Unknown]
  - Hypertension [Unknown]
  - Haemoglobin decreased [Recovering/Resolving]

NARRATIVE: CASE EVENT DATE: 20170330
